FAERS Safety Report 11208990 (Version 4)
Quarter: 2019Q1

REPORT INFORMATION
  Report Type: Spontaneous
  Country: US (occurrence: US)
  Receive Date: 20150622
  Receipt Date: 20190325
  Transmission Date: 20190417
  Serious: Yes (Hospitalization, Other)
  Sender: FDA-Public Use
  Company Number: US-DSJP-DSU-2015-119451

PATIENT
  Age: 79 Year
  Sex: Female
  Weight: 65.76 kg

DRUGS (3)
  1. BENICAR [Suspect]
     Active Substance: OLMESARTAN MEDOXOMIL
     Indication: HYPERTENSION
     Dosage: 40 MG, QD
     Route: 048
     Dates: start: 20080101, end: 20131113
  2. BENICAR HCT [Suspect]
     Active Substance: HYDROCHLOROTHIAZIDE\OLMESARTAN MEDOXOMIL
     Indication: PRODUCT USED FOR UNKNOWN INDICATION
     Dosage: 40-12.5 MG, QD
     Route: 048
  3. BENICAR [Suspect]
     Active Substance: OLMESARTAN MEDOXOMIL
     Dosage: 40 MG, QD
     Route: 048

REACTIONS (13)
  - Urinary tract infection [Recovering/Resolving]
  - Hiatus hernia [Unknown]
  - Small intestinal obstruction [Unknown]
  - Pancreatitis [Unknown]
  - Gastritis erosive [Unknown]
  - Inflammatory bowel disease [Unknown]
  - Sprue-like enteropathy [Recovering/Resolving]
  - Acute kidney injury [Unknown]
  - Coeliac disease [Unknown]
  - Gastrointestinal bacterial overgrowth [Unknown]
  - Dizziness [Unknown]
  - Irritable bowel syndrome [Recovering/Resolving]
  - Colon neoplasm [Unknown]

NARRATIVE: CASE EVENT DATE: 20120101
